FAERS Safety Report 7272744-8 (Version None)
Quarter: 2011Q1

REPORT INFORMATION
  Report Type: 
  Country: None (occurrence: None)
  Receive Date: 20110203
  Receipt Date: 20110131
  Transmission Date: 20110831
  Serious: No
  Sender: FDA-Public Use
  Company Number: US-PFIZER INC-2011022242

PATIENT
  Sex: Male
  Weight: 58.05 kg

DRUGS (2)
  1. ADVIL CONGESTION RELIEF [Suspect]
     Indication: SINUSITIS
     Dosage: 1 DF, 2X/DAY
     Route: 048
     Dates: start: 20110101, end: 20110128
  2. ADVIL [Suspect]
     Indication: SINUSITIS
     Dosage: UNK
     Dates: start: 20110130, end: 20110130

REACTIONS (2)
  - URTICARIA [None]
  - PRURITUS [None]
